FAERS Safety Report 12998306 (Version 4)
Quarter: 2017Q1

REPORT INFORMATION
  Report Type: Report from Study
  Country: US (occurrence: US)
  Receive Date: 20161205
  Receipt Date: 20170119
  Transmission Date: 20170428
  Serious: Yes (Hospitalization, Other)
  Sender: FDA-Public Use
  Company Number: US-GILEAD-2016-0246796

PATIENT
  Age: 60 Year
  Sex: Male
  Weight: 92.63 kg

DRUGS (17)
  1. REVATIO [Concomitant]
     Active Substance: SILDENAFIL CITRATE
  2. AMBRISENTAN [Suspect]
     Active Substance: AMBRISENTAN
     Indication: DRUG ABUSE
     Dosage: 5 MG, QD
     Route: 048
     Dates: start: 20161118, end: 20161120
  3. LOSARTAN. [Concomitant]
     Active Substance: LOSARTAN
  4. LIPITOR [Concomitant]
     Active Substance: ATORVASTATIN CALCIUM
  5. SILDENAFIL. [Concomitant]
     Active Substance: SILDENAFIL
  6. ATORVASTATIN [Concomitant]
     Active Substance: ATORVASTATIN
     Indication: PROPHYLAXIS
  7. DULERA [Concomitant]
     Active Substance: FORMOTEROL FUMARATE DIHYDRATE\MOMETASONE FUROATE
  8. ALDACTONE [Concomitant]
     Active Substance: SPIRONOLACTONE
  9. ALLOPURINOL. [Concomitant]
     Active Substance: ALLOPURINOL
  10. VITAMIN D3 [Concomitant]
     Active Substance: CHOLECALCIFEROL
  11. AMBRISENTAN [Suspect]
     Active Substance: AMBRISENTAN
     Indication: PULMONARY ARTERIAL HYPERTENSION
     Dosage: 5 MG, UNK
     Route: 065
     Dates: start: 20161116, end: 20161121
  12. AFRIN [Concomitant]
     Active Substance: OXYMETAZOLINE
  13. VENTOLIN [Concomitant]
     Active Substance: ALBUTEROL SULFATE
     Dosage: UNK
  14. VITAMIN D [Concomitant]
     Active Substance: CHOLECALCIFEROL
  15. FUROSEMIDE. [Concomitant]
     Active Substance: FUROSEMIDE
  16. LASIX [Concomitant]
     Active Substance: FUROSEMIDE
  17. PHENYLEPHRINE [Concomitant]
     Active Substance: PHENYLEPHRINE\PHENYLEPHRINE HYDROCHLORIDE

REACTIONS (6)
  - Tachycardia [Unknown]
  - Dyspnoea [Recovered/Resolved]
  - Blood bilirubin increased [Recovered/Resolved]
  - Tachycardia [Recovered/Resolved]
  - Infective exacerbation of bronchiectasis [Recovered/Resolved]
  - Cough [Recovered/Resolved]

NARRATIVE: CASE EVENT DATE: 20161121
